FAERS Safety Report 25265331 (Version 6)
Quarter: 2025Q3

REPORT INFORMATION
  Report Type: Spontaneous
  Country: US (occurrence: US)
  Receive Date: 20250502
  Receipt Date: 20250716
  Transmission Date: 20251021
  Serious: No
  Sender: PFIZER
  Company Number: US-PFIZER INC-202500091518

PATIENT
  Age: 22 Year
  Sex: Female

DRUGS (1)
  1. ADCETRIS [Suspect]
     Active Substance: BRENTUXIMAB VEDOTIN
     Indication: T-cell lymphoma
     Dosage: 111 MG, EVERY 21 DAYS
     Route: 042

REACTIONS (2)
  - Weight increased [Not Recovered/Not Resolved]
  - Off label use [Unknown]
